FAERS Safety Report 17759075 (Version 1)
Quarter: 2020Q2

REPORT INFORMATION
  Report Type: Spontaneous
  Country: US (occurrence: US)
  Receive Date: 20200508
  Receipt Date: 20200508
  Transmission Date: 20200714
  Serious: Yes (Hospitalization, Disabling, Other)
  Sender: FDA-Public Use
  Company Number: US-SUN PHARMACEUTICAL INDUSTRIES LTD-2020R1-245659

PATIENT
  Sex: Female

DRUGS (1)
  1. ATORVASTATIN [Suspect]
     Active Substance: ATORVASTATIN
     Indication: PRODUCT USED FOR UNKNOWN INDICATION
     Dosage: 1 DOSAGE FORM, QD
     Route: 048
     Dates: start: 201908

REACTIONS (4)
  - Fall [Unknown]
  - Head injury [Unknown]
  - Haematoma [Unknown]
  - Thrombosis [Unknown]
